FAERS Safety Report 12942865 (Version 3)
Quarter: 2016Q4

REPORT INFORMATION
  Report Type: Report from Study
  Country: DE (occurrence: DE)
  Receive Date: 20161115
  Receipt Date: 20161128
  Transmission Date: 20170207
  Serious: Yes (Life-Threatening, Hospitalization)
  Sender: FDA-Public Use
  Company Number: DE-JNJFOC-20161112917

PATIENT
  Age: 72 Year
  Sex: Male
  Weight: 100 kg

DRUGS (2)
  1. XARELTO [Suspect]
     Active Substance: RIVAROXABAN
     Indication: ATRIAL FIBRILLATION
     Route: 048
     Dates: start: 20160824, end: 20161105
  2. XARELTO [Suspect]
     Active Substance: RIVAROXABAN
     Indication: CEREBROVASCULAR ACCIDENT PROPHYLAXIS
     Route: 048
     Dates: start: 20160824, end: 20161105

REACTIONS (10)
  - Pelvic haematoma [Recovered/Resolved]
  - Acute kidney injury [Unknown]
  - Rib fracture [Unknown]
  - Fall [Not Recovered/Not Resolved]
  - Bladder injury [Unknown]
  - Epistaxis [Not Recovered/Not Resolved]
  - Retroperitoneal haemorrhage [Recovered/Resolved]
  - Cardiovascular disorder [Recovered/Resolved]
  - Pelvic fracture [Unknown]
  - Cardiac arrest [Recovered/Resolved]

NARRATIVE: CASE EVENT DATE: 20161105
